FAERS Safety Report 12238345 (Version 1)
Quarter: 2016Q2

REPORT INFORMATION
  Report Type: Spontaneous
  Country: US (occurrence: None)
  Receive Date: 20160404
  Receipt Date: 20160404
  Transmission Date: 20160815
  Serious: No
  Sender: FDA-Public Use
  Company Number: None

PATIENT
  Age: 77 Year
  Sex: Female

DRUGS (23)
  1. AMOXICILLIN. [Concomitant]
     Active Substance: AMOXICILLIN
  2. MAGNESIUM-OX [Concomitant]
  3. NORVASC [Concomitant]
     Active Substance: AMLODIPINE BESYLATE
  4. POT CHLORIDE [Concomitant]
     Active Substance: POTASSIUM CHLORIDE
  5. CREON [Concomitant]
     Active Substance: PANCRELIPASE AMYLASE\PANCRELIPASE LIPASE\PANCRELIPASE PROTEASE
  6. OMEPRAZOLE. [Concomitant]
     Active Substance: OMEPRAZOLE
  7. PRISTIQ EXTENDED-RELEASE [Concomitant]
     Active Substance: DESVENLAFAXINE SUCCINATE
  8. LONSURF [Suspect]
     Active Substance: TIPIRACIL HYDROCHLORIDE\TRIFLURIDINE
     Indication: NEOPLASM MALIGNANT
     Dosage: 15-6.14MG- 45MG BID ORAL
     Route: 048
     Dates: start: 20160229
  9. PROBIOTIC [Concomitant]
     Active Substance: PROBIOTICS NOS
  10. GENTAK [Concomitant]
     Active Substance: GENTAMICIN SULFATE
  11. AMLODIPINE [Concomitant]
     Active Substance: AMLODIPINE BESYLATE
  12. DIPHEN/ATROP [Concomitant]
     Active Substance: ATROPINE SULFATE\DIPHENOXYLATE
  13. ZOFRAN [Concomitant]
     Active Substance: ONDANSETRON HYDROCHLORIDE
  14. Q-DRYL [Concomitant]
     Active Substance: DIPHENHYDRAMINE HYDROCHLORIDE
  15. LOMOTIL [Concomitant]
     Active Substance: ATROPINE SULFATE\DIPHENOXYLATE HYDROCHLORIDE
  16. IBUPROFEN. [Concomitant]
     Active Substance: IBUPROFEN
  17. LEVOTHYROXIN [Concomitant]
     Active Substance: LEVOTHYROXINE
  18. PRISTIQ EXTENDED-RELEASE [Concomitant]
     Active Substance: DESVENLAFAXINE SUCCINATE
  19. PROCHLORPER [Concomitant]
  20. HYDROCO/APAP [Concomitant]
     Active Substance: ACETAMINOPHEN\HYDROCODONE
  21. FOLIC ACID. [Concomitant]
     Active Substance: FOLIC ACID
  22. ASPIRIN. [Concomitant]
     Active Substance: ASPIRIN
  23. POT CL [Concomitant]

REACTIONS (2)
  - Vomiting [None]
  - Nausea [None]

NARRATIVE: CASE EVENT DATE: 201603
